FAERS Safety Report 22228150 (Version 1)
Quarter: 2023Q2

REPORT INFORMATION
  Report Type: Spontaneous
  Country: US (occurrence: None)
  Receive Date: 20230418
  Receipt Date: 20230418
  Transmission Date: 20230721
  Serious: No
  Sender: FDA-Public Use
  Company Number: None

PATIENT
  Age: 7 Year
  Sex: Male
  Weight: 22.5 kg

DRUGS (2)
  1. DYANAVEL XR [Suspect]
     Active Substance: AMPHETAMINE
     Indication: Attention deficit hyperactivity disorder
     Dosage: OTHER QUANTITY : 4 ML;?FREQUENCY : DAILY;?
     Route: 048
  2. Dyanavel XR , 4mL daily [Concomitant]

REACTIONS (2)
  - Overdose [None]
  - Device use confusion [None]

NARRATIVE: CASE EVENT DATE: 20230329
